FAERS Safety Report 9147501 (Version 1)
Quarter: 2013Q1

REPORT INFORMATION
  Report Type: Spontaneous
  Country: US (occurrence: US)
  Receive Date: 20130307
  Receipt Date: 20130307
  Transmission Date: 20140127
  Serious: Yes (Disabling)
  Sender: FDA-Public Use
  Company Number: US-ASTRAZENECA-2013SE13156

PATIENT
  Age: 44 Year
  Sex: Male

DRUGS (1)
  1. BRILINTA [Suspect]
     Indication: CORONARY ARTERY DISEASE
     Dosage: 90 BID
     Route: 048
     Dates: start: 20120201, end: 2013

REACTIONS (1)
  - Acute myocardial infarction [Recovering/Resolving]
